FAERS Safety Report 18339345 (Version 1)
Quarter: 2020Q4

REPORT INFORMATION
  Report Type: Spontaneous
  Country: US (occurrence: US)
  Receive Date: 20201002
  Receipt Date: 20201002
  Transmission Date: 20210113
  Serious: Yes (Life-Threatening, Other)
  Sender: FDA-Public Use
  Company Number: None

PATIENT
  Age: 46 Year
  Sex: Female
  Weight: 99 kg

DRUGS (7)
  1. DIPHENHYDRAMINE HCL [Concomitant]
     Active Substance: DIPHENHYDRAMINE HYDROCHLORIDE
  2. FLUTICASONE PROPIONATE. [Concomitant]
     Active Substance: FLUTICASONE PROPIONATE
  3. AZELASTINE HCI NASAL SPRAY 0.15% [Suspect]
     Active Substance: AZELASTINE HYDROCHLORIDE
     Indication: EAR DISORDER
     Dosage: ?          QUANTITY:2 SPRAY(S);?
     Route: 055
     Dates: start: 20200331, end: 20200926
  4. CETIRIZINE HYDROCHLORIDE. [Concomitant]
     Active Substance: CETIRIZINE HYDROCHLORIDE
  5. MONTELUKAST [Concomitant]
     Active Substance: MONTELUKAST SODIUM
  6. WELBY MULTE VITE COMPLETE MULTIVITAMIN [Concomitant]
  7. AZELASTINE HCI NASAL SPRAY 0.15% [Suspect]
     Active Substance: AZELASTINE HYDROCHLORIDE
     Indication: MULTIPLE ALLERGIES
     Dosage: ?          QUANTITY:2 SPRAY(S);?
     Route: 055
     Dates: start: 20200331, end: 20200926

REACTIONS (3)
  - Upper respiratory tract infection [None]
  - Orthopnoea [None]
  - Dyspnoea [None]

NARRATIVE: CASE EVENT DATE: 20200926
